FAERS Safety Report 11220415 (Version 1)
Quarter: 2015Q2

REPORT INFORMATION
  Report Type: Spontaneous
  Country: US (occurrence: None)
  Receive Date: 20150625
  Receipt Date: 20150625
  Transmission Date: 20150821
  Serious: No
  Sender: FDA-Public Use
  Company Number: None

PATIENT
  Age: 73 Year
  Sex: Female
  Weight: 92.08 kg

DRUGS (1)
  1. TAXOL [Suspect]
     Active Substance: PACLITAXEL
     Indication: BREAST CANCER
     Route: 042
     Dates: start: 20150615

REACTIONS (5)
  - Heart rate increased [None]
  - Dyspnoea [None]
  - Blood pressure increased [None]
  - Oxygen saturation decreased [None]
  - Wheezing [None]

NARRATIVE: CASE EVENT DATE: 20150622
